FAERS Safety Report 15016655 (Version 2)
Quarter: 2018Q3

REPORT INFORMATION
  Report Type: Spontaneous
  Country: EG (occurrence: EG)
  Receive Date: 20180615
  Receipt Date: 20180712
  Transmission Date: 20181010
  Serious: Yes (Hospitalization)
  Sender: FDA-Public Use
  Company Number: EG-NOVOPROD-605682

PATIENT
  Age: 64 Year
  Sex: Male

DRUGS (2)
  1. TAMSULIN [Concomitant]
     Dosage: UNK
     Route: 065
  2. MIXTARD 30 HM PENFILL [Suspect]
     Active Substance: INSULIN HUMAN
     Indication: DIABETES MELLITUS
     Dosage: UNK
     Route: 065

REACTIONS (3)
  - Diabetic hyperglycaemic coma [Recovered/Resolved]
  - Device failure [Unknown]
  - Device malfunction [Unknown]
